FAERS Safety Report 19660690 (Version 2)
Quarter: 2022Q1

REPORT INFORMATION
  Report Type: Spontaneous
  Country: CA (occurrence: CA)
  Receive Date: 20210805
  Receipt Date: 20220125
  Transmission Date: 20220424
  Serious: Yes (Life-Threatening, Hospitalization, Other)
  Sender: FDA-Public Use
  Company Number: None

PATIENT
  Age: 3 Year
  Sex: Male
  Weight: 16 kg

DRUGS (33)
  1. CISPLATIN [Suspect]
     Active Substance: CISPLATIN
     Indication: Atypical teratoid/rhabdoid tumour of CNS
     Dosage: SOLUTION INTRAVENOUS
     Route: 042
  2. ETOPOSIDE [Suspect]
     Active Substance: ETOPOSIDE
     Indication: Atypical teratoid/rhabdoid tumour of CNS
     Route: 042
  3. VINCRISTINE SULFATE [Suspect]
     Active Substance: VINCRISTINE SULFATE
     Indication: Atypical teratoid/rhabdoid tumour of CNS
     Route: 042
  4. CYCLOPHOSPHAMIDE [Suspect]
     Active Substance: CYCLOPHOSPHAMIDE
     Indication: Atypical teratoid/rhabdoid tumour of CNS
     Route: 042
  5. ACETAMINOPHEN [Concomitant]
     Active Substance: ACETAMINOPHEN
  6. CALCIUM\CHOLECALCIFEROL [Concomitant]
     Active Substance: CALCIUM\CHOLECALCIFEROL
  7. CICLESONIDE [Concomitant]
     Active Substance: CICLESONIDE
  8. CYTARABINE [Concomitant]
     Active Substance: CYTARABINE
  9. DIPHENHYDRAMINE [Concomitant]
     Active Substance: DIPHENHYDRAMINE
  10. EMEND [Concomitant]
     Active Substance: APREPITANT
  11. FILGRASTIM [Concomitant]
     Active Substance: FILGRASTIM
  12. FUROSEMIDE [Concomitant]
     Active Substance: FUROSEMIDE
  13. HYDROCORTISONE [Concomitant]
     Active Substance: HYDROCORTISONE
  14. MAGNESIUM [Concomitant]
     Active Substance: MAGNESIUM
  15. MESNA [Concomitant]
     Active Substance: MESNA
  16. METOCLOPRAMIDE [Concomitant]
     Active Substance: METOCLOPRAMIDE
  17. MORPHINE [Concomitant]
     Active Substance: MORPHINE
  18. ONDANSETRON [Concomitant]
     Active Substance: ONDANSETRON
  19. POLYETHYLENE GLYCOL [Concomitant]
     Active Substance: POLYETHYLENE GLYCOL
  20. SENNOSIDES [Concomitant]
     Active Substance: SENNOSIDES
  21. SULFAMETHOXAZOLE\TRIMETHOPRIM [Concomitant]
     Active Substance: SULFAMETHOXAZOLE\TRIMETHOPRIM
  22. VANCOMYCIN [Concomitant]
     Active Substance: VANCOMYCIN
  23. CHOLECALCIFEROL [Concomitant]
     Active Substance: CHOLECALCIFEROL
  24. CYCLOPHOSPHAMIDE [Concomitant]
     Active Substance: CYCLOPHOSPHAMIDE
  25. ETOPOSIDE [Concomitant]
     Active Substance: ETOPOSIDE
  26. OXYBUTYNIN [Concomitant]
     Active Substance: OXYBUTYNIN
  27. PIPERACILLIN AND TAZOBACTAM [Concomitant]
     Active Substance: PIPERACILLIN SODIUM\TAZOBACTAM SODIUM
  28. POTASSIUM [Concomitant]
     Active Substance: POTASSIUM
     Dosage: SOLUTION INTRAVENOUS
  29. SENNOSIDES A AND B [Concomitant]
     Active Substance: SENNOSIDES A AND B
  30. SODIUM [Concomitant]
     Active Substance: SODIUM
  31. VINCRISTINE SULFATE [Concomitant]
     Active Substance: VINCRISTINE SULFATE
  32. CALCIUM [Concomitant]
     Active Substance: CALCIUM
  33. CHOLECALCIFEROL [Concomitant]
     Active Substance: CHOLECALCIFEROL

REACTIONS (5)
  - Febrile neutropenia [Recovered/Resolved]
  - Off label use [Unknown]
  - Aplastic anaemia [Recovered/Resolved]
  - Deafness bilateral [Not Recovered/Not Resolved]
  - Ototoxicity [Not Recovered/Not Resolved]
